FAERS Safety Report 5062406-X (Version None)
Quarter: 2006Q3

REPORT INFORMATION
  Report Type: 
  Country: None (occurrence: None)
  Receive Date: 20060721
  Receipt Date: 20060630
  Transmission Date: 20061208
  Serious: Yes (Hospitalization)
  Sender: FDA-Public Use
  Company Number: 2006087820

PATIENT
  Age: 63 Year
  Sex: Female

DRUGS (6)
  1. NIFEDIPINE [Suspect]
     Indication: HYPERTENSION
     Dosage: 30 MG (DAILY) ORAL
     Route: 048
  2. GLICLAZIDE (GLICLAZIDE) [Suspect]
     Indication: DIABETES MELLITUS
     Dosage: 30 MG (DAILY) ORAL
     Route: 048
  3. METFORMIN (METFORMIN) [Suspect]
     Indication: DIABETES MELLITUS
     Dosage: 500 MG (DAILY) ORAL
     Route: 048
  4. CILAZAPRIL (CILAZAPRIL) [Suspect]
     Indication: HYPERTENSION
     Dosage: 30 MG (DAILY) ORAL
     Route: 048
  5. ACARBOSE [Concomitant]
  6. CARVEDILOL [Concomitant]

REACTIONS (2)
  - ENDOMETRIAL CANCER [None]
  - MALIGNANT MELANOMA [None]
